FAERS Safety Report 4301491-7 (Version None)
Quarter: 2004Q1

REPORT INFORMATION
  Report Type: 
  Country: None (occurrence: None)
  Receive Date: 20040219
  Receipt Date: 20040209
  Transmission Date: 20041129
  Serious: Yes (Hospitalization)
  Sender: FDA-Public Use
  Company Number: S03-USA-05301-01

PATIENT
  Age: 52 Year
  Sex: Male

DRUGS (7)
  1. LEXAPRO [Suspect]
     Indication: ANXIETY
     Dosage: 40 MG QD PO
     Route: 048
  2. LEXAPRO [Suspect]
     Indication: DEPRESSION
     Dosage: 40 MG QD PO
     Route: 048
  3. LEXAPRO [Suspect]
     Indication: ANXIETY
     Dosage: 10 MG QD PO
     Route: 048
     Dates: start: 20021201
  4. LEXAPRO [Suspect]
     Indication: DEPRESSION
     Dosage: 10 MG QD PO
     Route: 048
     Dates: start: 20021201
  5. LEXAPRO [Suspect]
     Indication: ANXIETY
     Dosage: 20 MG QD PO
     Route: 048
  6. LEXAPRO [Suspect]
     Indication: DEPRESSION
     Dosage: 20 MG QD PO
     Route: 048
  7. COUMADIN [Concomitant]

REACTIONS (4)
  - ABDOMINAL PAIN [None]
  - HYPONATRAEMIA [None]
  - LIPASE INCREASED [None]
  - THROMBOCYTOPENIA [None]
